FAERS Safety Report 17223104 (Version 3)
Quarter: 2020Q1

REPORT INFORMATION
  Report Type: Spontaneous
  Country: US (occurrence: US)
  Receive Date: 20200102
  Receipt Date: 20200309
  Transmission Date: 20200409
  Serious: No
  Sender: FDA-Public Use
  Company Number: US-CELGENEUS-USA-20191210548

PATIENT
  Sex: Female
  Weight: 50.85 kg

DRUGS (5)
  1. REVLIMID [Suspect]
     Active Substance: LENALIDOMIDE
     Indication: PLASMA CELL MYELOMA
     Dosage: 10 MILLIGRAM
     Route: 048
     Dates: start: 20190715
  2. DEXAMETHASONE. [Concomitant]
     Active Substance: DEXAMETHASONE
     Indication: PRODUCT USED FOR UNKNOWN INDICATION
     Route: 048
  3. LEVOTHYROXINE. [Concomitant]
     Active Substance: LEVOTHYROXINE
     Indication: PRODUCT USED FOR UNKNOWN INDICATION
     Route: 065
  4. LEVOTHYROXINE SODIUM. [Concomitant]
     Active Substance: LEVOTHYROXINE SODIUM
     Indication: PRODUCT USED FOR UNKNOWN INDICATION
     Route: 065
  5. REVLIMID [Suspect]
     Active Substance: LENALIDOMIDE
     Dosage: 5 MILLIGRAM
     Route: 048
     Dates: start: 202002

REACTIONS (6)
  - Oral pain [Not Recovered/Not Resolved]
  - Gastrooesophageal reflux disease [Unknown]
  - Gingival bleeding [Not Recovered/Not Resolved]
  - Aphthous ulcer [Unknown]
  - Swollen tongue [Unknown]
  - Gingival swelling [Not Recovered/Not Resolved]

NARRATIVE: CASE EVENT DATE: 2019
